FAERS Safety Report 8806134 (Version 1)
Quarter: 2012Q4

REPORT INFORMATION
  Report Type: Spontaneous
  Country: KR (occurrence: None)
  Receive Date: 20120918
  Receipt Date: 20120918
  Transmission Date: 20130627
  Serious: Yes (Other)
  Sender: FDA-Public Use
  Company Number: DSA_59515_2012

PATIENT

DRUGS (4)
  1. FLUOROURACIL [Suspect]
     Indication: GASTRIC CANCER
     Dosage: 2000 mg/m2 (every other week) Intravenous (not otherwise specified)
     Route: 042
  2. LEUCOVORIN [Suspect]
     Dosage: 100 mg/m2 (every other week) Intravenous (not otherwise specified)
     Route: 042
  3. LEUCOVORIN [Suspect]
     Dosage: 100 mg/m2 (every other week) Intravenous (not otherwise specified)
     Route: 042
  4. IRINOTECAN [Suspect]
     Dosage: 150 mg/m2 (every other week) Intravenous (not otherwise specified)
     Route: 042

REACTIONS (2)
  - Vomiting [None]
  - Toxicity to various agents [None]
